FAERS Safety Report 25356991 (Version 1)
Quarter: 2025Q2

REPORT INFORMATION
  Report Type: Spontaneous
  Country: US (occurrence: US)
  Receive Date: 20250526
  Receipt Date: 20250526
  Transmission Date: 20250716
  Serious: No
  Sender: VANDA PHARMACEUTICALS
  Company Number: US-VANDA PHARMACEUTICALS, INC-2025ILOUS001998

PATIENT
  Sex: Female

DRUGS (3)
  1. FANAPT [Suspect]
     Active Substance: ILOPERIDONE
     Indication: Bipolar disorder
     Dosage: 6 MILLIGRAM, BID
     Dates: start: 20241219
  2. FANAPT [Suspect]
     Active Substance: ILOPERIDONE
     Dosage: 6 MILLIGRAM, QD, 1 TAB QD X 1 WEEK
     Dates: start: 202501
  3. FANAPT [Suspect]
     Active Substance: ILOPERIDONE
     Dates: end: 20250120

REACTIONS (1)
  - Urinary incontinence [Recovered/Resolved]
